FAERS Safety Report 12889868 (Version 1)
Quarter: 2016Q4

REPORT INFORMATION
  Report Type: Spontaneous
  Country: GB (occurrence: GB)
  Receive Date: 20161027
  Receipt Date: 20161027
  Transmission Date: 20170207
  Serious: Yes (Other)
  Sender: FDA-Public Use
  Company Number: PHHY2016GB146292

PATIENT
  Age: 62 Year
  Sex: Male

DRUGS (4)
  1. ELTROMBOPAG [Suspect]
     Active Substance: ELTROMBOPAG
     Indication: IMMUNE THROMBOCYTOPENIC PURPURA
     Dosage: 50 MG, QD
     Route: 065
  2. ELTROMBOPAG [Suspect]
     Active Substance: ELTROMBOPAG
     Dosage: 50 MG, QD
     Route: 065
  3. ELTROMBOPAG [Suspect]
     Active Substance: ELTROMBOPAG
     Dosage: 50 MG, QOD
     Route: 065
  4. ELTROMBOPAG [Suspect]
     Active Substance: ELTROMBOPAG
     Dosage: 75 MG, QOD
     Route: 065

REACTIONS (7)
  - Arthralgia [Recovering/Resolving]
  - Peripheral arthritis [Recovering/Resolving]
  - Joint effusion [Recovering/Resolving]
  - Hypokinesia [Recovering/Resolving]
  - Joint swelling [Recovering/Resolving]
  - Synovitis [Recovering/Resolving]
  - Joint stiffness [Recovering/Resolving]
